FAERS Safety Report 20998706 (Version 1)
Quarter: 2022Q2

REPORT INFORMATION
  Report Type: Spontaneous
  Country: US (occurrence: None)
  Receive Date: 20220622
  Receipt Date: 20220622
  Transmission Date: 20220721
  Serious: Yes (Disabling)
  Sender: FDA-Public Use
  Company Number: None

PATIENT
  Age: 56 Year
  Sex: Female
  Weight: 53.1 kg

DRUGS (3)
  1. TREMFYA [Suspect]
     Active Substance: GUSELKUMAB
     Indication: Psoriatic arthropathy
     Route: 058
     Dates: start: 20210805, end: 20210805
  2. Budesonide NP thyroid 90 Amitiza [Concomitant]
  3. CALCIUM\MAGNESIUM [Concomitant]
     Active Substance: CALCIUM\MAGNESIUM

REACTIONS (3)
  - Colitis microscopic [None]
  - Therapy change [None]
  - Anal incontinence [None]

NARRATIVE: CASE EVENT DATE: 20210814
